FAERS Safety Report 13919531 (Version 1)
Quarter: 2017Q3

REPORT INFORMATION
  Report Type: Spontaneous
  Country: MX (occurrence: MX)
  Receive Date: 20170830
  Receipt Date: 20170830
  Transmission Date: 20171127
  Serious: Yes (Hospitalization)
  Sender: FDA-Public Use
  Company Number: MX-UCBSA-2017033637

PATIENT
  Age: 3 Year
  Sex: Male
  Weight: 20 kg

DRUGS (1)
  1. KEPPRA [Suspect]
     Active Substance: LEVETIRACETAM
     Indication: EPILEPSY
     Dosage: 2 ML, 2X/DAY (BID)
     Route: 048
     Dates: start: 201707

REACTIONS (5)
  - Drug intolerance [Unknown]
  - Erythema [Unknown]
  - Vomiting [Unknown]
  - Off label use [Unknown]
  - Petit mal epilepsy [Recovered/Resolved]

NARRATIVE: CASE EVENT DATE: 201707
